FAERS Safety Report 10361264 (Version 1)
Quarter: 2014Q3

REPORT INFORMATION
  Report Type: Spontaneous
  Country: US (occurrence: US)
  Receive Date: 20140804
  Receipt Date: 20140804
  Transmission Date: 20150326
  Serious: No
  Sender: FDA-Public Use
  Company Number: US-TEVA-497401USA

PATIENT
  Sex: Female

DRUGS (2)
  1. COLECALCIFEROL [Concomitant]
     Active Substance: CHOLECALCIFEROL
  2. COPAXONE [Suspect]
     Active Substance: GLATIRAMER ACETATE
     Indication: MULTIPLE SCLEROSIS
     Dates: start: 2014

REACTIONS (9)
  - Muscular weakness [Unknown]
  - Pain [Unknown]
  - Middle insomnia [Unknown]
  - Hypoaesthesia [Unknown]
  - Somnolence [Unknown]
  - Asthenia [Unknown]
  - Vertebral lesion [Unknown]
  - Memory impairment [Unknown]
  - Fatigue [Unknown]
